FAERS Safety Report 16396931 (Version 1)
Quarter: 2019Q2

REPORT INFORMATION
  Report Type: Report from Study
  Country: US (occurrence: US)
  Receive Date: 20190606
  Receipt Date: 20190606
  Transmission Date: 20190711
  Serious: No
  Sender: FDA-Public Use
  Company Number: US-ROCHE-2330073

PATIENT
  Sex: Female
  Weight: 59.02 kg

DRUGS (5)
  1. SELENIUM [Concomitant]
     Active Substance: SELENIUM
     Dosage: ONGOING:YES
     Route: 065
  2. VITAMIN B [Concomitant]
     Active Substance: VITAMIN B
     Dosage: ONGOING:YES
     Route: 065
  3. ALPRAZOLAM. [Concomitant]
     Active Substance: ALPRAZOLAM
     Indication: SLEEP TERROR
     Dosage: 1-2 AS NEEDED ;ONGOING: YES
     Route: 065
  4. OCREVUS [Suspect]
     Active Substance: OCRELIZUMAB
     Indication: RELAPSING-REMITTING MULTIPLE SCLEROSIS
     Route: 042
     Dates: start: 201609
  5. ZINC. [Concomitant]
     Active Substance: ZINC
     Dosage: ONGOING:YES
     Route: 065

REACTIONS (2)
  - Nasopharyngitis [Not Recovered/Not Resolved]
  - Hypoaesthesia [Recovered/Resolved]
